FAERS Safety Report 6601347-0 (Version None)
Quarter: 2010Q1

REPORT INFORMATION
  Report Type: 
  Country: None (occurrence: None)
  Receive Date: 20100224
  Receipt Date: 20100224
  Transmission Date: 20100710
  Serious: Yes (Disabling, Other)
  Sender: FDA-Public Use
  Company Number: None

PATIENT
  Age: 45 Year
  Sex: Male
  Weight: 84.1 kg

DRUGS (1)
  1. KAPIDEX [Suspect]
     Indication: GASTROOESOPHAGEAL REFLUX DISEASE
     Dosage: 60 MG DAILY ORALLY
     Route: 048
     Dates: start: 20091216, end: 20091221

REACTIONS (10)
  - BURNING SENSATION [None]
  - EYE IRRITATION [None]
  - HYPOAESTHESIA [None]
  - MUSCLE SPASMS [None]
  - MUSCLE TWITCHING [None]
  - MUSCULAR WEAKNESS [None]
  - NERVOUS SYSTEM DISORDER [None]
  - PAIN [None]
  - PARAESTHESIA [None]
  - TEMPERATURE INTOLERANCE [None]
